FAERS Safety Report 17404545 (Version 1)
Quarter: 2020Q1

REPORT INFORMATION
  Report Type: Spontaneous
  Country: GB (occurrence: GB)
  Receive Date: 20200211
  Receipt Date: 20200211
  Transmission Date: 20200409
  Serious: Yes (Disabling)
  Sender: FDA-Public Use
  Company Number: GB-PFIZER INC-2020056023

PATIENT
  Age: 56 Year
  Sex: Female
  Weight: 77 kg

DRUGS (18)
  1. DOCUSATE SODIUM. [Concomitant]
     Active Substance: DOCUSATE SODIUM
     Dosage: 3 DF, 1X/DAY
     Dates: start: 20190130
  2. SUMATRIPTAN. [Concomitant]
     Active Substance: SUMATRIPTAN
     Dosage: AS DIRECTED
     Dates: start: 20190130
  3. AMITRIPTYLINE HYDROCHLORIDE. [Concomitant]
     Active Substance: AMITRIPTYLINE HYDROCHLORIDE
     Dosage: 1 DF, 1X/DAY (EACH NIGHT)
     Dates: start: 20190130
  4. LEVOTHYROXINE. [Concomitant]
     Active Substance: LEVOTHYROXINE
     Dosage: 3 DF, 1X/DAY
     Dates: start: 20190130
  5. GABAPENTIN. [Concomitant]
     Active Substance: GABAPENTIN
     Dosage: 2 DF, 1X/DAY
     Dates: start: 20190820
  6. SERTRALINE [Concomitant]
     Active Substance: SERTRALINE HYDROCHLORIDE
     Dosage: 2 DF, 1X/DAY
     Dates: start: 20190130
  7. LINACLOTIDE [Concomitant]
     Active Substance: LINACLOTIDE
     Dosage: AS PER CONSULTANT GUIDEL...
     Dates: start: 20190130
  8. PRUCALOPRIDE [Concomitant]
     Active Substance: PRUCALOPRIDE
     Dosage: 2 DF, 1X/DAY
     Dates: start: 20190313
  9. HYLO-FORTE [Concomitant]
     Active Substance: HYALURONATE SODIUM
     Dosage: USE AS DIRECTED
     Dates: start: 20190130
  10. CAPSAICIN. [Concomitant]
     Active Substance: CAPSAICIN
     Dosage: 4 DF, 1X/DAY
     Route: 061
     Dates: start: 20190130
  11. OMEPRAZOLE. [Concomitant]
     Active Substance: OMEPRAZOLE
     Dosage: UNK, AS NEEDED (1 OR 2 DAILY AS NEEDED)
     Dates: start: 20190130
  12. PREGABALIN. [Suspect]
     Active Substance: PREGABALIN
     Dosage: 300 MG, UNK
  13. CETIRIZINE [Concomitant]
     Active Substance: CETIRIZINE HYDROCHLORIDE
     Dosage: 1 DF, 1X/DAY
     Dates: start: 20200114
  14. LACRI-LUBE [Concomitant]
     Dosage: APPLY TO BOTH EYES AT NIGHT
     Route: 061
     Dates: start: 20190130
  15. KLIOFEM [Concomitant]
     Active Substance: ESTRADIOL\NORETHINDRONE ACETATE
     Dosage: 1 DF, 1X/DAY
  16. BETAMETHASONE VALERATE. [Concomitant]
     Active Substance: BETAMETHASONE VALERATE
     Dosage: 2 DF, 2X/DAY
     Route: 061
     Dates: start: 20190130
  17. CELECOXIB. [Concomitant]
     Active Substance: CELECOXIB
     Dosage: 2 DF, 1X/DAY (ONLY WHEN NEEDED)
     Dates: start: 20190130
  18. EVOREL [Concomitant]
     Dosage: 2 DF, 2X/WEEK
     Route: 061
     Dates: start: 20190313

REACTIONS (1)
  - Peripheral swelling [Recovering/Resolving]
